FAERS Safety Report 18096875 (Version 3)
Quarter: 2020Q3

REPORT INFORMATION
  Report Type: Other
  Country: TR (occurrence: TR)
  Receive Date: 20200731
  Receipt Date: 20200930
  Transmission Date: 20201103
  Serious: Yes (Other)
  Sender: FDA-Public Use
  Company Number: TR-ROCHE-2650580

PATIENT
  Age: 54 Year
  Sex: Male

DRUGS (2)
  1. RANIBIZUMAB. [Suspect]
     Active Substance: RANIBIZUMAB
     Indication: DIABETIC RETINOPATHY
  2. RANIBIZUMAB. [Suspect]
     Active Substance: RANIBIZUMAB
     Indication: DIABETIC RETINAL OEDEMA
     Route: 031
     Dates: end: 20130823

REACTIONS (9)
  - Visual acuity reduced [Recovered/Resolved]
  - Sensation of foreign body [Recovered/Resolved]
  - Endophthalmitis [Unknown]
  - Ocular hyperaemia [Recovered/Resolved]
  - Lacrimation increased [Recovered/Resolved]
  - Herpes ophthalmic [Recovered/Resolved]
  - Corneal oedema [Unknown]
  - Ocular hypertension [Recovered/Resolved]
  - Photophobia [Recovered/Resolved]
